FAERS Safety Report 12642906 (Version 1)
Quarter: 2016Q3

REPORT INFORMATION
  Report Type: Spontaneous
  Country: CA (occurrence: CA)
  Receive Date: 20160811
  Receipt Date: 20160811
  Transmission Date: 20161109
  Serious: Yes (Life-Threatening, Hospitalization, Other)
  Sender: FDA-Public Use
  Company Number: CA-AMGEN-CANSP2016101758

PATIENT
  Age: 28 Year
  Sex: Female

DRUGS (9)
  1. AMITRIPTYLINE [Concomitant]
     Active Substance: AMITRIPTYLINE
  2. DEMULEN [Concomitant]
     Active Substance: ETHINYL ESTRADIOL\ETHYNODIOL
  3. PROLIA [Suspect]
     Active Substance: DENOSUMAB
     Indication: PRODUCT USED FOR UNKNOWN INDICATION
     Dosage: 60 MG, Q6MO
     Route: 058
  4. PREGABALIN. [Concomitant]
     Active Substance: PREGABALIN
  5. CIMZIA [Suspect]
     Active Substance: CERTOLIZUMAB PEGOL
     Indication: JUVENILE IDIOPATHIC ARTHRITIS
     Dosage: 20 MG, Q2WK
     Route: 058
  6. IPRATROPIUM [Concomitant]
     Active Substance: IPRATROPIUM
  7. PREDNISONE. [Concomitant]
     Active Substance: PREDNISONE
  8. SALBUTAMOL [Concomitant]
     Active Substance: ALBUTEROL
  9. HYDROMORPHONE [Concomitant]
     Active Substance: HYDROMORPHONE

REACTIONS (5)
  - Cholestasis [Unknown]
  - Febrile neutropenia [Unknown]
  - Septic shock [Unknown]
  - Transaminases increased [Unknown]
  - Ulcerative keratitis [Unknown]
